FAERS Safety Report 9682303 (Version 2)
Quarter: 2014Q1

REPORT INFORMATION
  Report Type: Spontaneous
  Country: DE (occurrence: DE)
  Receive Date: 20131112
  Receipt Date: 20140131
  Transmission Date: 20141002
  Serious: Yes (Other)
  Sender: FDA-Public Use
  Company Number: DE-BIOGENIDEC-2013BI024877

PATIENT
  Age: 34 Year
  Sex: Female

DRUGS (3)
  1. AVONEX [Suspect]
     Indication: MULTIPLE SCLEROSIS
     Route: 030
     Dates: start: 20061001, end: 20130308
  2. PARACETAMOL [Concomitant]
     Indication: PROPHYLAXIS
     Dates: start: 20061001, end: 20130308
  3. IBUPROFEN [Concomitant]
     Indication: PROPHYLAXIS
     Dates: start: 200610, end: 20130301

REACTIONS (2)
  - Maternal distress during labour [Recovered/Resolved]
  - Premature labour [Recovered/Resolved]
